FAERS Safety Report 16253616 (Version 2)
Quarter: 2019Q3

REPORT INFORMATION
  Report Type: Spontaneous
  Country: FR (occurrence: FR)
  Receive Date: 20190430
  Receipt Date: 20190724
  Transmission Date: 20191004
  Serious: Yes (Hospitalization, Other)
  Sender: FDA-Public Use
  Company Number: FR-AUROBINDO-AUR-APL-2019-023123

PATIENT

DRUGS (2)
  1. LAMOTRIGINE DISPERSIBLE TABLET 100MG [Suspect]
     Active Substance: LAMOTRIGINE
     Indication: EPILEPSY
     Dosage: 100 MILLIGRAM, ONCE A DAY
     Route: 048
     Dates: start: 2019
  2. LAMOTRIGINE DISPERSIBLE TABLET 100MG [Suspect]
     Active Substance: LAMOTRIGINE
     Dosage: 100 MILLIGRAM, ONCE A DAY
     Route: 048
     Dates: start: 2019

REACTIONS (8)
  - Dyskinesia [Not Recovered/Not Resolved]
  - Suicidal ideation [Not Recovered/Not Resolved]
  - Confusional state [Not Recovered/Not Resolved]
  - Rash maculo-papular [Not Recovered/Not Resolved]
  - Face oedema [Not Recovered/Not Resolved]
  - Blister [Not Recovered/Not Resolved]
  - Epilepsy [Not Recovered/Not Resolved]
  - Headache [Not Recovered/Not Resolved]
